FAERS Safety Report 13650574 (Version 1)
Quarter: 2017Q2

REPORT INFORMATION
  Report Type: Report from Study
  Country: US (occurrence: US)
  Receive Date: 20170614
  Receipt Date: 20170614
  Transmission Date: 20170830
  Serious: Yes (Death)
  Sender: FDA-Public Use
  Company Number: US-TORRENT-00002883

PATIENT
  Age: 53 Year
  Sex: Male

DRUGS (4)
  1. AMLODIPINE [Suspect]
     Active Substance: AMLODIPINE BESYLATE
  2. PHENOTHIAZINE [Suspect]
     Active Substance: PHENOTHIAZINE
  3. QUETIAPINE. [Suspect]
     Active Substance: QUETIAPINE
  4. METHOCARBAMOL. [Suspect]
     Active Substance: METHOCARBAMOL

REACTIONS (2)
  - Toxicity to various agents [Fatal]
  - Product use issue [None]
